FAERS Safety Report 13623244 (Version 1)
Quarter: 2017Q2

REPORT INFORMATION
  Report Type: Report from Study
  Country: US (occurrence: US)
  Receive Date: 20170607
  Receipt Date: 20170607
  Transmission Date: 20170830
  Serious: Yes (Hospitalization)
  Sender: FDA-Public Use
  Company Number: US-ACTELION-A-US2017-154849

PATIENT
  Age: 67 Year
  Sex: Female

DRUGS (12)
  1. CLOPIDOGREL [Concomitant]
     Active Substance: CLOPIDOGREL BISULFATE
  2. LASIX [Concomitant]
     Active Substance: FUROSEMIDE
  3. ALENDRONATE SODIUM. [Concomitant]
     Active Substance: ALENDRONATE SODIUM
  4. GLUCOPHAGE [Concomitant]
     Active Substance: METFORMIN HYDROCHLORIDE
  5. PRAVASTATIN SODIUM. [Concomitant]
     Active Substance: PRAVASTATIN SODIUM
  6. OMEPRAZOLE. [Concomitant]
     Active Substance: OMEPRAZOLE
  7. LEVOTHYROXINE. [Concomitant]
     Active Substance: LEVOTHYROXINE
  8. OPSUMIT [Suspect]
     Active Substance: MACITENTAN
     Indication: PULMONARY ARTERIAL HYPERTENSION
     Dosage: 10 MG, UNK
     Route: 048
     Dates: start: 20141007
  9. ADEMPAS [Concomitant]
     Active Substance: RIOCIGUAT
  10. IRON [Concomitant]
     Active Substance: IRON
  11. ASPIRIN. [Concomitant]
     Active Substance: ASPIRIN
  12. CELLCEPT [Concomitant]
     Active Substance: MYCOPHENOLATE MOFETIL\MYCOPHENOLATE MOFETIL HYDROCHLORIDE

REACTIONS (2)
  - Transfusion [Not Recovered/Not Resolved]
  - Haemorrhage [Not Recovered/Not Resolved]
